FAERS Safety Report 6968602-6 (Version None)
Quarter: 2010Q3

REPORT INFORMATION
  Report Type: 
  Country: None (occurrence: None)
  Receive Date: 20100907
  Receipt Date: 20100830
  Transmission Date: 20110219
  Serious: Yes (Life-Threatening, Hospitalization)
  Sender: FDA-Public Use
  Company Number: ZA-JNJFOC-20100808577

PATIENT
  Age: 84 Year
  Sex: Female

DRUGS (6)
  1. SPORANOX [Suspect]
     Indication: ORAL CANDIDIASIS
     Route: 065
  2. WARFARIN SODIUM [Interacting]
     Indication: ATRIAL FIBRILLATION
     Route: 065
  3. VERAHEXAL [Concomitant]
     Route: 065
  4. ELTROXIN [Concomitant]
     Route: 065
  5. ENAP [Concomitant]
     Route: 065
  6. LANOXIN [Concomitant]
     Route: 065

REACTIONS (3)
  - DRUG INTERACTION [None]
  - HAEMORRHAGE [None]
  - PLATELET DISORDER [None]
